FAERS Safety Report 6143320-5 (Version None)
Quarter: 2009Q2

REPORT INFORMATION
  Report Type: 
  Country: None (occurrence: None)
  Receive Date: 20090403
  Receipt Date: 20090326
  Transmission Date: 20091009
  Serious: Yes (Disabling)
  Sender: FDA-Public Use
  Company Number: B0562815A

PATIENT
  Sex: Female

DRUGS (4)
  1. SERETIDE [Suspect]
     Route: 055
     Dates: start: 20081101
  2. UNKNOWN DRUG [Concomitant]
     Dosage: 1TAB THREE TIMES PER DAY
     Route: 065
  3. ASPARCAM [Concomitant]
     Dosage: 1TAB THREE TIMES PER DAY
     Route: 065
  4. MAGNEROT (MAGNESIUM OROTATE) [Concomitant]
     Dosage: 1TAB TWICE PER DAY
     Route: 065

REACTIONS (1)
  - CONVULSION [None]
